FAERS Safety Report 25149625 (Version 1)
Quarter: 2025Q2

REPORT INFORMATION
  Report Type: Spontaneous
  Country: US (occurrence: US)
  Receive Date: 20250402
  Receipt Date: 20250402
  Transmission Date: 20250716
  Serious: No
  Sender: BAYER
  Company Number: US-BAYER-2025A041388

PATIENT
  Sex: Female

DRUGS (1)
  1. MIRALAX [Suspect]
     Active Substance: POLYETHYLENE GLYCOL 3350
     Indication: Constipation
     Dosage: UNK, QD
     Route: 048

REACTIONS (3)
  - Abdominal pain upper [None]
  - Flatulence [None]
  - Incorrect product administration duration [None]
